FAERS Safety Report 7959726-5 (Version None)
Quarter: 2011Q4

REPORT INFORMATION
  Report Type: 
  Country: None (occurrence: None)
  Receive Date: 20111206
  Receipt Date: 20111128
  Transmission Date: 20120403
  Serious: Yes (Other)
  Sender: FDA-Public Use
  Company Number: US-GLAXOSMITHKLINE-A0955273A

PATIENT
  Age: 71 Year
  Sex: Female

DRUGS (3)
  1. MEDICATION FOR HIGH BLOOD PRESSURE [Concomitant]
  2. LAMICTAL [Suspect]
     Indication: POST-TRAUMATIC STRESS DISORDER
     Route: 048
     Dates: start: 20111010, end: 20111121
  3. VITAMIN TAB [Concomitant]

REACTIONS (3)
  - OFF LABEL USE [None]
  - SKIN ATROPHY [None]
  - RASH [None]
